FAERS Safety Report 16123634 (Version 2)
Quarter: 2019Q2

REPORT INFORMATION
  Report Type: Spontaneous
  Country: US (occurrence: US)
  Receive Date: 20190327
  Receipt Date: 20190411
  Transmission Date: 20190711
  Serious: Yes (Hospitalization, Other)
  Sender: FDA-Public Use
  Company Number: US-ASTRAZENECA-2019SE45436

PATIENT
  Age: 3277 Week
  Sex: Male
  Weight: 64.8 kg

DRUGS (8)
  1. METOPROLOL. [Suspect]
     Active Substance: METOPROLOL
     Indication: CARDIAC DISORDER
     Route: 048
  2. ASPIRIN. [Concomitant]
     Active Substance: ASPIRIN
     Route: 048
  3. PNEUMOCOCCAL VACCINE POLYVALENT NOS [Concomitant]
     Active Substance: PNEUMOCOCCAL VACCINE POLYVALENT
     Dosage: 0.5ML ONCE/SINGLE ADMINISTRATION
     Route: 030
  4. POTASSIUM CHLORIDE. [Concomitant]
     Active Substance: POTASSIUM CHLORIDE
     Route: 048
  5. ATORVASTATIN [Concomitant]
     Active Substance: ATORVASTATIN
     Route: 048
  6. BRILINTA [Suspect]
     Active Substance: TICAGRELOR
     Indication: MYOCARDIAL INFARCTION
     Route: 048
     Dates: start: 20181114, end: 20181120
  7. LISINOPRIL. [Suspect]
     Active Substance: LISINOPRIL
     Route: 048
  8. NITROGLYCERIN. [Concomitant]
     Active Substance: NITROGLYCERIN
     Indication: CHEST DISCOMFORT
     Dosage: 0.4MG AS REQUIRED
     Route: 048

REACTIONS (12)
  - Platelet disorder [Unknown]
  - Myocardial infarction [Unknown]
  - Endocarditis [Unknown]
  - Blood culture positive [Unknown]
  - Heart valve incompetence [Unknown]
  - Intracranial aneurysm [Unknown]
  - Infective aneurysm [Unknown]
  - Hypertension [Unknown]
  - Pancreatitis [Unknown]
  - Cerebral haemorrhage [Unknown]
  - Cardiac murmur [Unknown]
  - Hyperlipidaemia [Unknown]

NARRATIVE: CASE EVENT DATE: 2010
